FAERS Safety Report 10504249 (Version 1)
Quarter: 2014Q4

REPORT INFORMATION
  Report Type: Spontaneous
  Country: US (occurrence: US)
  Receive Date: 20141008
  Receipt Date: 20141008
  Transmission Date: 20150528
  Serious: No
  Sender: FDA-Public Use
  Company Number: US-BEH-2014043278

PATIENT
  Sex: Female

DRUGS (3)
  1. PRIVIGEN [Suspect]
     Active Substance: HUMAN IMMUNOGLOBULIN G
     Indication: RASH ERYTHEMATOUS
     Dosage: NORMALLY 4 WEEKS APART; 6 WEEKS SINCE PREVIOUS INFUSION
  2. PRIVIGEN [Suspect]
     Active Substance: HUMAN IMMUNOGLOBULIN G
     Indication: SKIN DISORDER
     Dosage: NORMALLY 4 WEEKS APART; 6 WEEKS SINCE PREVIOUS INFUSION
  3. PRIVIGEN [Suspect]
     Active Substance: HUMAN IMMUNOGLOBULIN G
     Indication: SKIN BURNING SENSATION
     Dosage: NORMALLY 4 WEEKS APART; 6 WEEKS SINCE PREVIOUS INFUSION

REACTIONS (2)
  - Drug ineffective for unapproved indication [Unknown]
  - Product physical consistency issue [Unknown]
